FAERS Safety Report 8611530-0 (Version None)
Quarter: 2012Q3

REPORT INFORMATION
  Report Type: 
  Country: None (occurrence: None)
  Receive Date: 20120809
  Receipt Date: 20120725
  Transmission Date: 20120928
  Serious: Yes (Death, Other)
  Sender: FDA-Public Use
  Company Number: 2012MA009151

PATIENT
  Age: 50 Year
  Sex: Male

DRUGS (5)
  1. KADIAN [Suspect]
     Indication: INTENTIONAL DRUG MISUSE
     Dosage: PO
     Route: 048
  2. METHAMPHETAMINE HYDROCHLORIDE [Suspect]
     Indication: INTENTIONAL DRUG MISUSE
     Dosage: PO
     Route: 048
  3. ALPRAZOLAM [Suspect]
     Indication: INTENTIONAL DRUG MISUSE
     Dosage: PO
     Route: 048
  4. DIAZEPAM [Suspect]
     Indication: INTENTIONAL DRUG MISUSE
     Dosage: PO
     Route: 048
  5. OXYCODONE HCL [Suspect]
     Indication: INTENTIONAL DRUG MISUSE
     Dosage: PO
     Route: 048

REACTIONS (4)
  - TOXICITY TO VARIOUS AGENTS [None]
  - UNRESPONSIVE TO STIMULI [None]
  - ACCIDENTAL DEATH [None]
  - INTENTIONAL DRUG MISUSE [None]
